FAERS Safety Report 14714714 (Version 1)
Quarter: 2018Q2

REPORT INFORMATION
  Report Type: Spontaneous
  Country: FR (occurrence: FR)
  Receive Date: 20180404
  Receipt Date: 20180404
  Transmission Date: 20180711
  Serious: Yes (Other)
  Sender: FDA-Public Use
  Company Number: FR-TEVA-2018-FR-877683

PATIENT
  Sex: Female

DRUGS (1)
  1. TAMOXIFENE [Suspect]
     Active Substance: TAMOXIFEN
     Indication: BREAST CANCER
     Route: 065

REACTIONS (1)
  - Oophorectomy [Unknown]
